FAERS Safety Report 21980614 (Version 3)
Quarter: 2023Q1

REPORT INFORMATION
  Report Type: Spontaneous
  Country: US (occurrence: US)
  Receive Date: 20230211
  Receipt Date: 20230217
  Transmission Date: 20230418
  Serious: Yes (Hospitalization)
  Sender: FDA-Public Use
  Company Number: US-UNITED THERAPEUTICS-UNT-2022-030181

PATIENT
  Sex: Female
  Weight: 65.76 kg

DRUGS (9)
  1. REMODULIN [Suspect]
     Active Substance: TREPROSTINIL
     Indication: Pulmonary arterial hypertension
     Dosage: 0.044 ?G/KG, (PHARMACY FILLED 3ML PER CASSETTE; AT A PUMP RATE OF 35MCL PER HOUR), CONTINUING
     Route: 058
     Dates: start: 2022
  2. REMODULIN [Suspect]
     Active Substance: TREPROSTINIL
     Dosage: 0.047 ?G/KG, (PHARMACY PRE-FILLED WITH 3 ML PER CASSETTE, AT A PUMP RATE OF 38 MCL/HOUR), CONTINUING
     Route: 058
     Dates: start: 2022
  3. REMODULIN [Suspect]
     Active Substance: TREPROSTINIL
     Dosage: UNK (AT A PUMP RATE OF 37 MCL/HOUR), CONTINUING
     Route: 058
     Dates: start: 2022
  4. REMODULIN [Suspect]
     Active Substance: TREPROSTINIL
     Dosage: 0.048 ?G/KG, (PHARMACY PRE-FILLED WITH 3 ML PER CASSETTE, AT A PUMP RATE OF 38 MCL/HOUR), CONTINUING
     Route: 058
     Dates: start: 2022
  5. REMODULIN [Suspect]
     Active Substance: TREPROSTINIL
     Dosage: UNK, CONTINUING
     Route: 058
     Dates: start: 20220909
  6. REMODULIN [Suspect]
     Active Substance: TREPROSTINIL
     Indication: Pulmonary arterial hypertension
     Dosage: 0.056 ?G/KG, CONTINUING (PHARMACY FILLED WITH 2.4ML PER CASSETTE; PUMP RATE 22 MCL PER HOUR)
     Route: 058
  7. REMODULIN [Suspect]
     Active Substance: TREPROSTINIL
     Dosage: 0.070 ?G/KG, CONTINUING (PHARMACY PRE-FILLED WITH 2.4 ML PER CASSETTE; PUMP RATE OF 22 MCL PER HOUR)
     Route: 058
  8. OPSUMIT [Concomitant]
     Active Substance: MACITENTAN
     Indication: Product used for unknown indication
     Dosage: UNK
     Route: 065
  9. SILDENAFIL CITRATE [Concomitant]
     Active Substance: SILDENAFIL CITRATE
     Indication: Product used for unknown indication
     Dosage: UNK
     Route: 065

REACTIONS (8)
  - Weight decreased [Unknown]
  - Gastrointestinal disorder [Unknown]
  - Blood potassium decreased [Unknown]
  - Hypotension [Unknown]
  - Seasonal allergy [Unknown]
  - Nausea [Unknown]
  - Infusion site erythema [Unknown]
  - Infusion site swelling [Unknown]

NARRATIVE: CASE EVENT DATE: 20220101
